FAERS Safety Report 9671541 (Version 1)
Quarter: 2013Q4

REPORT INFORMATION
  Report Type: Spontaneous
  Country: US (occurrence: US)
  Receive Date: 20131106
  Receipt Date: 20131106
  Transmission Date: 20140711
  Serious: No
  Sender: FDA-Public Use
  Company Number: US-PFIZER INC-2013314735

PATIENT
  Sex: Female

DRUGS (1)
  1. LYRICA [Suspect]
     Dosage: 75 MG, 1X/DAY
     Dates: start: 20131101

REACTIONS (4)
  - Dizziness [Unknown]
  - Balance disorder [Unknown]
  - Disturbance in attention [Unknown]
  - Thinking abnormal [Unknown]
